FAERS Safety Report 8323116-6 (Version None)
Quarter: 2012Q2

REPORT INFORMATION
  Report Type: 
  Country: None (occurrence: None)
  Receive Date: 20120430
  Receipt Date: 20120425
  Transmission Date: 20120825
  Serious: Yes (Other)
  Sender: FDA-Public Use
  Company Number: PHEH2012US005638

PATIENT
  Sex: Female

DRUGS (4)
  1. TOPAMAX [Concomitant]
     Dosage: 50 MG, QD
  2. CLONAZEPAM [Concomitant]
  3. CELEXA [Concomitant]
     Dosage: 20 MG, QD
  4. GILENYA [Suspect]
     Indication: RELAPSING-REMITTING MULTIPLE SCLEROSIS
     Dosage: 0.5 MG, QD
     Route: 048
     Dates: start: 20120127

REACTIONS (2)
  - ELECTROCARDIOGRAM ST SEGMENT ABNORMAL [None]
  - PALPITATIONS [None]
